FAERS Safety Report 17017495 (Version 4)
Quarter: 2020Q1

REPORT INFORMATION
  Report Type: Spontaneous
  Country: ES (occurrence: ES)
  Receive Date: 20191111
  Receipt Date: 20200127
  Transmission Date: 20200409
  Serious: Yes (Hospitalization, Other)
  Sender: FDA-Public Use
  Company Number: ES-ASTELLAS-2019US044117

PATIENT
  Age: 88 Year
  Sex: Male

DRUGS (12)
  1. DEPRAX                             /00447702/ [Concomitant]
     Active Substance: TRAZODONE HYDROCHLORIDE
     Indication: COGNITIVE DISORDER
     Route: 065
     Dates: start: 20190213
  2. METFORMIN [Concomitant]
     Active Substance: METFORMIN HYDROCHLORIDE
     Indication: DIABETES MELLITUS
     Dosage: 850 MG, EVERY 12 HOURS (50 TABLETS)
     Route: 065
     Dates: start: 20190110
  3. BUSCAPINA [Concomitant]
     Indication: PAIN
     Dosage: 10 MG, AS NEEDED (ON DEMAND)
     Route: 065
     Dates: start: 20190801
  4. FENOFIBRATE W/PRAVASTATIN [Concomitant]
     Indication: DYSLIPIDAEMIA
     Dosage: 40MG/160MG, ONCE DAILY
     Route: 048
     Dates: start: 20190630
  5. VESOMNI [Concomitant]
     Active Substance: SOLIFENACIN\TAMSULOSIN
     Indication: LOWER URINARY TRACT SYMPTOMS
     Dosage: 6 MG / 0.4 MG, ONCE DAILY
     Route: 065
  6. LOSARTAN AND HYDROCHLOROTHIAZIDE [Concomitant]
     Active Substance: HYDROCHLOROTHIAZIDE\LOSARTAN POTASSIUM
     Indication: HYPERTENSION
     Route: 048
     Dates: start: 20190610
  7. METAMIZOLE [Concomitant]
     Active Substance: METAMIZOLE
     Indication: PAIN
     Route: 048
     Dates: start: 20190213
  8. PARACETAMOL W/TRAMADOL [Concomitant]
     Active Substance: ACETAMINOPHEN\TRAMADOL
     Indication: PAIN
     Dosage: 0.5 TABLET, EVERY 8 HOURS (STRENGTH: 75 MG/650 MG)
     Route: 065
     Dates: start: 20190927
  9. PRIMPERAN [Concomitant]
     Active Substance: METOCLOPRAMIDE HYDROCHLORIDE
     Indication: NAUSEA
     Dosage: 1 MG/ML, EVERY 8 HOURS
     Route: 048
     Dates: start: 20190313
  10. XTANDI [Suspect]
     Active Substance: ENZALUTAMIDE
     Indication: HORMONE-REFRACTORY PROSTATE CANCER
     Route: 048
     Dates: start: 20190321, end: 20191002
  11. PARACETAMOL [Concomitant]
     Active Substance: ACETAMINOPHEN
     Indication: PAIN
     Dosage: 1 G, EVERY 8 HOURS (40 POWDER SACHET)
     Route: 048
     Dates: start: 20190329
  12. DECAPEPTYL (ACETATE) [Concomitant]
     Active Substance: TRIPTORELIN ACETATE
     Indication: PROSTATE CANCER
     Dosage: 22.5 MG, EVERY SIX MONTHS (POWDER)
     Route: 058
     Dates: start: 20190114

REACTIONS (1)
  - Status epilepticus [Recovered/Resolved]

NARRATIVE: CASE EVENT DATE: 20191002
